FAERS Safety Report 16978734 (Version 1)
Quarter: 2019Q4

REPORT INFORMATION
  Report Type: Spontaneous
  Country: FR (occurrence: FR)
  Receive Date: 20191031
  Receipt Date: 20191031
  Transmission Date: 20200122
  Serious: Yes (Death, Hospitalization, Other)
  Sender: FDA-Public Use
  Company Number: FR-ALEMBIC PHARMACUETICALS LIMITED-2019SCAL000821

PATIENT

DRUGS (1)
  1. CELECOXIB. [Suspect]
     Active Substance: CELECOXIB
     Indication: BACK PAIN
     Dosage: 200 MILLIGRAM
     Dates: start: 20170406

REACTIONS (17)
  - Vanishing bile duct syndrome [Fatal]
  - Decreased appetite [Fatal]
  - Hepatitis cholestatic [Fatal]
  - Hypersensitivity [Unknown]
  - Abdominal pain [Fatal]
  - Rash [Recovered/Resolved]
  - Jaundice [Fatal]
  - Drug-induced liver injury [Fatal]
  - Cholangitis infective [Unknown]
  - Weight decreased [Fatal]
  - Pyrexia [Unknown]
  - Multiple organ dysfunction syndrome [Fatal]
  - Pruritus [Fatal]
  - Nausea [Fatal]
  - Abdominal discomfort [Fatal]
  - Malnutrition [Fatal]
  - Asthenia [Fatal]

NARRATIVE: CASE EVENT DATE: 20170408
